FAERS Safety Report 22121630 (Version 5)
Quarter: 2024Q1

REPORT INFORMATION
  Report Type: Spontaneous
  Country: DK (occurrence: DK)
  Receive Date: 20230321
  Receipt Date: 20240123
  Transmission Date: 20240410
  Serious: Yes (Disabling, Other)
  Sender: FDA-Public Use
  Company Number: DK-009507513-2303DNK005315

PATIENT
  Sex: Female

DRUGS (3)
  1. PEMBROLIZUMAB [Suspect]
     Active Substance: PEMBROLIZUMAB
     Indication: Lung adenocarcinoma stage IV
     Dosage: 8 CYCLES
  2. PEMETREXED [Suspect]
     Active Substance: PEMETREXED
     Indication: Lung adenocarcinoma stage IV
     Dosage: 8 CYCLES, , FROM THE SECOND CYCLE ONWARDS, THE DOSE WAS REDUCED TO 75% OF THE RECOMMENDED DOSE
  3. CARBOPLATIN [Suspect]
     Active Substance: CARBOPLATIN
     Indication: Lung adenocarcinoma stage IV
     Dosage: 8 CYCLES, , FROM THE SECOND CYCLE ONWARDS, THE DOSE WAS REDUCED TO 75% OF THE RECOMMENDED DOSE

REACTIONS (2)
  - Hepatic function abnormal [Recovered/Resolved]
  - Peripheral sensory neuropathy [Recovered/Resolved]
